FAERS Safety Report 9555638 (Version 1)
Quarter: 2013Q3

REPORT INFORMATION
  Report Type: Spontaneous
  Country: US (occurrence: None)
  Receive Date: 20130724
  Receipt Date: 20130724
  Transmission Date: 20140515
  Serious: Yes (Other)
  Sender: FDA-Public Use
  Company Number: PHEH2013US006243

PATIENT
  Age: 49 Year
  Sex: Female
  Weight: 92.5 kg

DRUGS (11)
  1. GILENYA (FINGOLIMOD) CAPSULE, 0.5MG [Suspect]
  2. OXYTROL [Suspect]
  3. AVONEX (INTERFERON BETA-1A) [Concomitant]
  4. VITAMIN C (ASCORBIC ACID) CAPSULE, 500 MG [Concomitant]
  5. MULTIPLE VITAMINS (ASCORBIC ACID, ERGOCALCIFEROL, FOLIC ACID, RETINOL, TOCOPHEROL, VITAMIN B NOS) CAPSULE [Concomitant]
  6. COLECALCIFEROL [Concomitant]
  7. FISH OIL [Concomitant]
  8. AMPYRA (FAMPRIDINE) TABLET, 10MG [Concomitant]
  9. CYCLOBENZAPRIN HCL (CYCLOBENZAPRINE HYDROCHLORIDE) [Concomitant]
  10. TRAZODONE [Concomitant]
  11. BACLOFEN [Concomitant]

REACTIONS (1)
  - Diplopia [None]
